FAERS Safety Report 8808440 (Version 1)
Quarter: 2012Q4

REPORT INFORMATION
  Report Type: 
  Country: US (occurrence: US)
  Receive Date: 20120926
  Receipt Date: 20120926
  Transmission Date: 20130627
  Serious: No
  Sender: FDA-Public Use
  Company Number: US-PFIZER INC-2012235128

PATIENT
  Age: 46 Year
  Sex: Female
  Weight: 112.01 kg

DRUGS (9)
  1. NORVASC [Suspect]
     Indication: CORONARY ARTERY DISEASE
     Dosage: 5 mg, UNK
     Route: 048
     Dates: start: 2011, end: 201208
  2. NORVASC [Suspect]
     Indication: CHEST PAIN
  3. CHANTIX [Suspect]
     Indication: SMOKING CESSATION THERAPY
     Dosage: 0.5 mg, UNK
     Route: 048
     Dates: start: 2011
  4. CHANTIX [Suspect]
     Dosage: UNK
     Dates: end: 2012
  5. METOPROLOL TARTRATE [Suspect]
     Indication: CORONARY ARTERY DISEASE
     Dosage: 50 mg, daily
  6. PLAVIX [Suspect]
     Indication: ANTICOAGULANT THERAPY
     Dosage: 75 mg, daily
  7. TRICOR [Suspect]
     Indication: BLOOD TRIGLYCERIDES ABNORMAL
     Dosage: 145 mg, daily
     Route: 048
  8. IMDUR [Suspect]
     Indication: CHEST PAIN
     Dosage: 120 mg, daily
  9. TRAMADOL [Suspect]
     Dosage: UNK

REACTIONS (4)
  - Chest pain [Not Recovered/Not Resolved]
  - Pain in extremity [Not Recovered/Not Resolved]
  - Hypoaesthesia [Not Recovered/Not Resolved]
  - Nightmare [Recovered/Resolved]
